FAERS Safety Report 9846659 (Version 2)
Quarter: 2014Q1

REPORT INFORMATION
  Report Type: Report from Study
  Country: US (occurrence: US)
  Receive Date: 20140127
  Receipt Date: 20140127
  Transmission Date: 20141002
  Serious: Yes (Hospitalization, Other)
  Sender: FDA-Public Use
  Company Number: US-ABBVIE-13P-163-1176423-00

PATIENT
  Age: 51 Year
  Sex: Female
  Weight: 79.45 kg

DRUGS (4)
  1. HUMIRA [Suspect]
     Indication: PSORIASIS
     Dates: start: 2012
  2. ZOLPIDEM [Concomitant]
     Indication: SLEEP DISORDER
  3. PREDNISONE [Concomitant]
     Indication: PRODUCT USED FOR UNKNOWN INDICATION
  4. NEXIUM [Concomitant]
     Indication: PRODUCT USED FOR UNKNOWN INDICATION

REACTIONS (6)
  - Bile duct obstruction [Recovered/Resolved]
  - Incisional hernia [Recovered/Resolved]
  - Incisional hernia [Unknown]
  - Cholelithiasis [Recovered/Resolved]
  - Incision site pain [Recovered/Resolved]
  - Incision site pain [Recovering/Resolving]
